FAERS Safety Report 14047456 (Version 1)
Quarter: 2017Q4

REPORT INFORMATION
  Report Type: Not Available
  Country: FR (occurrence: FR)
  Receive Date: 20171005
  Receipt Date: 20171005
  Transmission Date: 20180321
  Serious: Yes (Other)
  Sender: FDA-Public Use
  Company Number: FR-ANIPHARMA-2017-FR-000071

PATIENT
  Age: 67 Year
  Sex: Female

DRUGS (11)
  1. HYDROCHLOROTHIAZIDE. [Concomitant]
     Active Substance: HYDROCHLOROTHIAZIDE
     Dosage: 25 MG DAILY
  2. ASPIRIN. [Concomitant]
     Active Substance: ASPIRIN
     Dosage: 75 MG DAILY
  3. TEICOPLANIN [Concomitant]
     Active Substance: TEICOPLANIN
     Dosage: 400 MG DAILY
     Route: 058
  4. ATORVASTATIN [Concomitant]
     Active Substance: ATORVASTATIN
     Dosage: 20 MG DAILY
  5. NICARDIPINE HYDROCHLORIDE (NON-SPECIFIC) [Suspect]
     Active Substance: NICARDIPINE HYDROCHLORIDE
     Dosage: 50 MG TWICE DAILY
  6. RIFAMPICIN [Suspect]
     Active Substance: RIFAMPIN
     Dosage: 600 MG TWICE DAILY
     Route: 048
  7. IRBESARTAN. [Concomitant]
     Active Substance: IRBESARTAN
     Dosage: 300 MG DAILY
  8. METFORMIN [Concomitant]
     Active Substance: METFORMIN HYDROCHLORIDE
     Dosage: 500 MG TWICE DAILY
  9. ALPRAZOLAM (NON-SPECIFIC) [Concomitant]
     Active Substance: ALPRAZOLAM
     Dosage: 0.25 MG DAILY
  10. URAPIDIL [Concomitant]
     Active Substance: URAPIDIL
     Dosage: 60 MG TWICE DAILY
  11. ESOMEPRAZOLE [Concomitant]
     Active Substance: ESOMEPRAZOLE
     Dosage: 20 MG DAILY

REACTIONS (4)
  - Posterior reversible encephalopathy syndrome [Unknown]
  - Drug interaction [Unknown]
  - Acute kidney injury [Unknown]
  - Status epilepticus [Unknown]
